FAERS Safety Report 19230473 (Version 2)
Quarter: 2021Q4

REPORT INFORMATION
  Report Type: Report from Study
  Country: CN (occurrence: CN)
  Receive Date: 20210507
  Receipt Date: 20211215
  Transmission Date: 20220303
  Serious: Yes (Hospitalization)
  Sender: FDA-Public Use
  Company Number: CN-NOVARTISPH-NVSC2021CN097002

PATIENT
  Age: 56 Year
  Sex: Female

DRUGS (21)
  1. TYKERB [Suspect]
     Active Substance: LAPATINIB DITOSYLATE
     Indication: Breast cancer
     Dosage: 1250 MG, QD
     Route: 048
     Dates: start: 20171027
  2. TYKERB [Suspect]
     Active Substance: LAPATINIB DITOSYLATE
     Dosage: 1250 MG, QD (1 IN 1 D)
     Route: 048
     Dates: start: 20180416, end: 20180417
  3. TYKERB [Suspect]
     Active Substance: LAPATINIB DITOSYLATE
     Dosage: 1000 MG, QD
     Route: 048
     Dates: start: 20180518, end: 20210913
  4. CAPECITABINE [Suspect]
     Active Substance: CAPECITABINE
     Indication: Breast cancer
     Dosage: 1000 MG/M2, BID (ON DAYS 1-14 OF EACH 21-DAY CYCLE)
     Route: 048
     Dates: start: 20171027
  5. CAPECITABINE [Suspect]
     Active Substance: CAPECITABINE
     Dosage: 1000 MG/M2, BID
     Route: 048
     Dates: start: 20180409
  6. CAPECITABINE [Suspect]
     Active Substance: CAPECITABINE
     Dosage: 3600 MG/M2, BID ((1000 MG/M2,TWICE DAILY ON DAYS 1-14 OF EACH 21-DAY)
     Route: 048
     Dates: start: 20180409
  7. CAPECITABINE [Suspect]
     Active Substance: CAPECITABINE
     Dosage: 1400 MG, BID (X14)
     Route: 048
     Dates: start: 20180518
  8. ACETAMINOPHEN [Concomitant]
     Active Substance: ACETAMINOPHEN
     Indication: Pyrexia
     Dosage: UNK
     Route: 065
     Dates: start: 20180322, end: 20180323
  9. CAFFEINE [Concomitant]
     Active Substance: CAFFEINE
     Indication: Pyrexia
     Dosage: UNK
     Route: 065
     Dates: start: 20180322, end: 20180323
  10. ASPIRIN [Concomitant]
     Active Substance: ASPIRIN
     Indication: Pyrexia
     Dosage: UNK
     Route: 065
     Dates: start: 20180322, end: 20180323
  11. ROXITHROMYCIN [Concomitant]
     Active Substance: ROXITHROMYCIN
     Indication: Pyrexia
     Dosage: UNK
     Route: 065
     Dates: start: 20180322, end: 20180323
  12. POTASSIUM CHLORIDE [Concomitant]
     Active Substance: POTASSIUM CHLORIDE
     Indication: Hypokalaemia
     Dosage: UNK
     Route: 065
     Dates: start: 20180323, end: 20180326
  13. POTASSIUM CHLORIDE [Concomitant]
     Active Substance: POTASSIUM CHLORIDE
     Dosage: UNK
     Route: 065
     Dates: start: 20180419, end: 20180424
  14. POTASSIUM CHLORIDE [Concomitant]
     Active Substance: POTASSIUM CHLORIDE
     Dosage: UNK
     Route: 065
     Dates: start: 20180419, end: 20180420
  15. LEVOFLOXACIN [Concomitant]
     Active Substance: LEVOFLOXACIN
     Indication: Respiratory tract infection
     Dosage: UNK
     Route: 065
     Dates: start: 20180325, end: 20180325
  16. AMBROXOL [Concomitant]
     Active Substance: AMBROXOL
     Indication: Cough
     Dosage: UNK
     Route: 065
     Dates: start: 20180325, end: 20180325
  17. NADROPARIN [Concomitant]
     Active Substance: NADROPARIN
     Indication: Product used for unknown indication
     Dosage: UNK
     Route: 065
  18. ESTAZOLAM [Concomitant]
     Active Substance: ESTAZOLAM
     Indication: Insomnia
     Dosage: UNK
     Route: 065
     Dates: start: 20180418, end: 20180418
  19. ZOLEDRONIC ACID [Concomitant]
     Active Substance: ZOLEDRONIC ACID
     Indication: Prophylaxis
     Dosage: UNK
     Route: 065
     Dates: start: 20180425, end: 20180425
  20. LANSOPRAZOLE [Concomitant]
     Active Substance: LANSOPRAZOLE
     Indication: Gastrointestinal disorder prophylaxis
     Dosage: UNK
     Route: 048
     Dates: start: 20180419, end: 20180710
  21. MAGNESIUM ASPARTATE\POTASSIUM ASPARTATE [Concomitant]
     Active Substance: MAGNESIUM ASPARTATE\POTASSIUM ASPARTATE
     Indication: Hypokalaemia
     Dosage: UNK
     Route: 065
     Dates: start: 20180325, end: 20180325

REACTIONS (1)
  - Pulmonary embolism [Recovered/Resolved]

NARRATIVE: CASE EVENT DATE: 20180416
